FAERS Safety Report 15862462 (Version 1)
Quarter: 2019Q1

REPORT INFORMATION
  Report Type: Spontaneous
  Country: US (occurrence: US)
  Receive Date: 20190124
  Receipt Date: 20190124
  Transmission Date: 20190417
  Serious: Yes (Other)
  Sender: FDA-Public Use
  Company Number: PHHY2019US011381

PATIENT
  Age: 31 Year
  Sex: Female

DRUGS (2)
  1. ENTRESTO [Suspect]
     Active Substance: SACUBITRIL\VALSARTAN
     Dosage: 49/51 MG BID
     Route: 065
  2. ENTRESTO [Suspect]
     Active Substance: SACUBITRIL\VALSARTAN
     Indication: CARDIAC FAILURE
     Dosage: 24/26 MG BID FOR TWO MONTHS
     Route: 065

REACTIONS (6)
  - Hallucinations, mixed [Recovered/Resolved]
  - Nightmare [Recovered/Resolved]
  - Confabulation [Recovered/Resolved]
  - Paranoia [Recovered/Resolved]
  - Delusion [Recovered/Resolved]
  - Insomnia [Recovered/Resolved]
